FAERS Safety Report 9190609 (Version 2)
Quarter: 2013Q2

REPORT INFORMATION
  Report Type: Report from Study
  Country: US (occurrence: US)
  Receive Date: 20130326
  Receipt Date: 20130418
  Transmission Date: 20140414
  Serious: Yes (Hospitalization)
  Sender: FDA-Public Use
  Company Number: PHEH2013US006827

PATIENT
  Age: 38 Year
  Sex: Female
  Weight: 79.37 kg

DRUGS (7)
  1. GILENYA [Suspect]
     Indication: MULTIPLE SCLEROSIS
     Dosage: 0.5 MG, QD
     Route: 048
     Dates: start: 20130313
  2. GABAPENTIN [Concomitant]
  3. OXYCONTIN [Concomitant]
  4. XANAX [Concomitant]
  5. LYRICA [Concomitant]
  6. DETROL [Concomitant]
  7. AMITRIPTYLINE [Concomitant]

REACTIONS (14)
  - Multiple sclerosis relapse [Recovering/Resolving]
  - Hemiparesis [Not Recovered/Not Resolved]
  - Dysarthria [Recovering/Resolving]
  - Muscular weakness [Recovering/Resolving]
  - Gait disturbance [Recovering/Resolving]
  - Altered visual depth perception [Recovering/Resolving]
  - Diplopia [Recovering/Resolving]
  - Vision blurred [Not Recovered/Not Resolved]
  - Speech disorder [Not Recovered/Not Resolved]
  - Cognitive disorder [Recovering/Resolving]
  - Balance disorder [Recovering/Resolving]
  - Fall [Recovering/Resolving]
  - Dysphemia [Recovering/Resolving]
  - Dysphagia [Recovering/Resolving]
